FAERS Safety Report 6525541-2 (Version None)
Quarter: 2009Q4

REPORT INFORMATION
  Report Type: 
  Country: None (occurrence: None)
  Receive Date: 20091214
  Receipt Date: 20090113
  Transmission Date: 20100525
  Serious: Yes (Other)
  Sender: FDA-Public Use
  Company Number: 607971

PATIENT
  Age: 52 Year
  Sex: Male

DRUGS (2)
  1. PEGASYS [Suspect]
     Indication: HEPATITIS C
     Dates: start: 20090112
  2. RIBAVIRIN [Suspect]
     Indication: HEPATITIS C
     Dates: start: 20090112

REACTIONS (1)
  - PYREXIA [None]
